FAERS Safety Report 25194595 (Version 1)
Quarter: 2025Q2

REPORT INFORMATION
  Report Type: Spontaneous
  Country: GB (occurrence: GB)
  Receive Date: 20250414
  Receipt Date: 20250414
  Transmission Date: 20250717
  Serious: Yes (Other)
  Sender: ELI LILLY AND CO
  Company Number: None

PATIENT
  Age: 63 Year
  Sex: Female
  Weight: 82 kg

DRUGS (1)
  1. MOUNJARO [Suspect]
     Active Substance: TIRZEPATIDE
     Indication: Weight control
     Dosage: 2.5 MG, WEEKLY (1/W)
     Route: 058
     Dates: start: 20250328, end: 20250402

REACTIONS (8)
  - Reflux gastritis [Recovering/Resolving]
  - Feeling cold [Unknown]
  - Headache [Unknown]
  - Chills [Unknown]
  - Dry mouth [Unknown]
  - Eructation [Unknown]
  - Flatulence [Unknown]
  - Dysgeusia [Unknown]

NARRATIVE: CASE EVENT DATE: 20250330
